FAERS Safety Report 20642759 (Version 4)
Quarter: 2022Q2

REPORT INFORMATION
  Report Type: Spontaneous
  Country: US (occurrence: US)
  Receive Date: 20220328
  Receipt Date: 20220520
  Transmission Date: 20220721
  Serious: Yes (Other)
  Sender: FDA-Public Use
  Company Number: US-ELI_LILLY_AND_COMPANY-US202203009148

PATIENT
  Age: 49 Year
  Sex: Female

DRUGS (12)
  1. ADCIRCA [Suspect]
     Active Substance: TADALAFIL
     Indication: Pulmonary arterial hypertension
     Dosage: 40 MG, DAILY
     Route: 065
     Dates: start: 20220211
  2. ADCIRCA [Suspect]
     Active Substance: TADALAFIL
     Dosage: UNK UNK, UNKNOWN
     Route: 065
     Dates: start: 20220212
  3. ADCIRCA [Suspect]
     Active Substance: TADALAFIL
     Dosage: 60 MG, DAILY
     Route: 048
     Dates: start: 20220211, end: 202203
  4. AMBRISENTAN [Interacting]
     Active Substance: AMBRISENTAN
     Indication: Pulmonary arterial hypertension
     Dosage: 10 MG, DAILY
     Route: 065
     Dates: start: 201702
  5. AMBRISENTAN [Interacting]
     Active Substance: AMBRISENTAN
     Indication: Pulmonary hypertension
     Dosage: 10 MG, DAILY
     Route: 065
     Dates: start: 20191022
  6. TYVASO [Suspect]
     Active Substance: TREPROSTINIL
     Indication: Pulmonary arterial hypertension
     Dosage: 0.6 MG, QID
     Route: 065
     Dates: start: 20220224
  7. TYVASO [Suspect]
     Active Substance: TREPROSTINIL
     Dosage: 0.29 MG, QID
     Route: 065
  8. TYVASO [Suspect]
     Active Substance: TREPROSTINIL
     Dosage: 72 UG (12 BREATHS), QID
     Route: 055
     Dates: start: 20220224
  9. TYVASO [Suspect]
     Active Substance: TREPROSTINIL
     Dosage: 18 DOSAGE FORM
     Route: 055
  10. TYVASO [Suspect]
     Active Substance: TREPROSTINIL
     Dosage: 108 UG, QID
     Dates: start: 20220224
  11. VELETRI [Suspect]
     Active Substance: EPOPROSTENOL
     Indication: Pulmonary arterial hypertension
     Dosage: 10 NG, UNKNOWN
     Route: 065
     Dates: start: 20210630
  12. VELETRI [Suspect]
     Active Substance: EPOPROSTENOL
     Dosage: 10 NG, OTHER (Q1 MINUTE)
     Route: 065
     Dates: start: 20210701

REACTIONS (11)
  - Syncope [Unknown]
  - Muscle spasms [Unknown]
  - Eczema [Unknown]
  - Feeling abnormal [Unknown]
  - Aphasia [Unknown]
  - Pain in extremity [Unknown]
  - Peripheral swelling [Unknown]
  - Palpitations [Unknown]
  - Headache [Unknown]
  - Dizziness [Unknown]
  - Feeling hot [Unknown]

NARRATIVE: CASE EVENT DATE: 20220316
